FAERS Safety Report 8872569 (Version 2)
Quarter: 2014Q1

REPORT INFORMATION
  Report Type: Report from Study
  Country: IT (occurrence: IT)
  Receive Date: 20121030
  Receipt Date: 20140207
  Transmission Date: 20141002
  Serious: Yes (Death, Other)
  Sender: FDA-Public Use
  Company Number: IT-ROCHE-1119058

PATIENT
  Age: 70 Year
  Sex: Male

DRUGS (5)
  1. VEMURAFENIB [Suspect]
     Indication: METASTATIC MALIGNANT MELANOMA
     Route: 048
     Dates: start: 20120724
  2. PREDNISONE [Concomitant]
     Indication: PAIN
     Route: 048
  3. FUROSEMIDE [Concomitant]
     Indication: POLYURIA
     Route: 048
  4. TARGIN [Concomitant]
     Indication: PAIN
     Route: 048
  5. CITOFOLIN [Concomitant]
     Indication: ANAEMIA
     Dosage: 1 CP
     Route: 048

REACTIONS (2)
  - Sepsis [Fatal]
  - Rash [Recovering/Resolving]
